FAERS Safety Report 24696318 (Version 3)
Quarter: 2025Q1

REPORT INFORMATION
  Report Type: Report from Study
  Country: JP (occurrence: JP)
  Receive Date: 20241204
  Receipt Date: 20250108
  Transmission Date: 20250408
  Serious: Yes (Other)
  Sender: ALEXION PHARMACEUTICALS
  Company Number: JP-ASTRAZENECA-202411JPN019728JP

PATIENT

DRUGS (8)
  1. DANICOPAN [Suspect]
     Active Substance: DANICOPAN
     Route: 065
  2. DANICOPAN [Suspect]
     Active Substance: DANICOPAN
     Route: 065
  3. DANICOPAN [Suspect]
     Active Substance: DANICOPAN
     Route: 065
  4. DANICOPAN [Suspect]
     Active Substance: DANICOPAN
     Route: 065
  5. ULTOMIRIS [Suspect]
     Active Substance: RAVULIZUMAB-CWVZ
     Route: 065
  6. ULTOMIRIS [Suspect]
     Active Substance: RAVULIZUMAB-CWVZ
     Route: 065
  7. ULTOMIRIS [Suspect]
     Active Substance: RAVULIZUMAB-CWVZ
     Route: 065
  8. ULTOMIRIS [Suspect]
     Active Substance: RAVULIZUMAB-CWVZ
     Route: 065

REACTIONS (1)
  - Decreased appetite [Unknown]
